FAERS Safety Report 5573581-2 (Version None)
Quarter: 2007Q4

REPORT INFORMATION
  Report Type: 
  Country: None (occurrence: None)
  Receive Date: 20071226
  Receipt Date: 20071218
  Transmission Date: 20080405
  Serious: Yes (Other)
  Sender: FDA-Public Use
  Company Number: DE-JNJFOC-20071205050

PATIENT
  Age: 53 Year
  Sex: Male

DRUGS (2)
  1. REMICADE [Suspect]
     Dosage: SECOND INFUSION
     Route: 042
  2. REMICADE [Suspect]
     Indication: COLITIS ULCERATIVE
     Dosage: ONE INFUSION
     Route: 042

REACTIONS (5)
  - BLISTER [None]
  - INFLUENZA LIKE ILLNESS [None]
  - INFUSION RELATED REACTION [None]
  - OEDEMA PERIPHERAL [None]
  - URTICARIA [None]
